FAERS Safety Report 9310687 (Version 1)
Quarter: 2013Q2

REPORT INFORMATION
  Report Type: Spontaneous
  Country: BR (occurrence: BR)
  Receive Date: 20130527
  Receipt Date: 20130527
  Transmission Date: 20140414
  Serious: Yes (Death)
  Sender: FDA-Public Use
  Company Number: BR-ROCHE-1228311

PATIENT
  Sex: Female
  Weight: 55 kg

DRUGS (2)
  1. XELODA [Suspect]
     Indication: BREAST CANCER
     Route: 048
     Dates: start: 2010, end: 201106
  2. XELODA [Suspect]
     Indication: METASTASES TO LUNG

REACTIONS (1)
  - Disease progression [Fatal]
